FAERS Safety Report 13360668 (Version 9)
Quarter: 2017Q3

REPORT INFORMATION
  Report Type: Spontaneous
  Country: US (occurrence: US)
  Receive Date: 20170322
  Receipt Date: 20170726
  Transmission Date: 20171127
  Serious: Yes (Hospitalization)
  Sender: FDA-Public Use
  Company Number: US-ACTELION-A-NJ2017-150966

PATIENT
  Age: 63 Year
  Sex: Male
  Weight: 85.26 kg

DRUGS (4)
  1. VELETRI [Suspect]
     Active Substance: EPOPROSTENOL
     Dosage: 8.5 NG/KG, PER MIN
     Route: 042
  2. VELETRI [Suspect]
     Active Substance: EPOPROSTENOL
     Dosage: 10 NG/KG, PER MIN
     Route: 042
  3. UPTRAVI [Concomitant]
     Active Substance: SELEXIPAG
     Indication: PULMONARY HYPERTENSION
     Route: 048
  4. VELETRI [Suspect]
     Active Substance: EPOPROSTENOL
     Indication: PULMONARY HYPERTENSION
     Dosage: 8 NG/KG, PER MIN
     Route: 042

REACTIONS (26)
  - Abdominal discomfort [Unknown]
  - Suicidal ideation [Unknown]
  - Frustration tolerance decreased [Unknown]
  - Malaise [Unknown]
  - Vomiting [Unknown]
  - Musculoskeletal discomfort [Unknown]
  - Hypotension [Unknown]
  - Chest pain [Unknown]
  - Catheter site vesicles [Unknown]
  - Pain [Unknown]
  - Influenza like illness [Unknown]
  - Fatigue [Unknown]
  - Hyperhidrosis [Unknown]
  - Asthenia [Unknown]
  - Catheter site papule [Unknown]
  - Device malfunction [Unknown]
  - Dyspnoea exertional [Unknown]
  - Diarrhoea [Unknown]
  - Nausea [Unknown]
  - Headache [Unknown]
  - Balance disorder [Unknown]
  - Musculoskeletal pain [Unknown]
  - Device dislocation [Recovered/Resolved]
  - Dizziness [Unknown]
  - Back pain [Unknown]
  - Catheter site erythema [Unknown]

NARRATIVE: CASE EVENT DATE: 20170309
